FAERS Safety Report 19104335 (Version 1)
Quarter: 2021Q2

REPORT INFORMATION
  Report Type: Spontaneous
  Country: RO (occurrence: RO)
  Receive Date: 20210407
  Receipt Date: 20210407
  Transmission Date: 20210717
  Serious: Yes (Other)
  Sender: FDA-Public Use
  Company Number: RO-VALIDUS PHARMACEUTICALS LLC-RO-2021VAL000236

PATIENT
  Age: 41 Year
  Sex: Male

DRUGS (1)
  1. FUROSEMIDE. [Suspect]
     Active Substance: FUROSEMIDE
     Indication: WEIGHT DECREASED
     Dosage: 80?120 MG, FUROSEMIDE PER DAY IN THE LAST 2 WEEKS
     Route: 065

REACTIONS (11)
  - Ventricular fibrillation [Recovering/Resolving]
  - Chest pain [Unknown]
  - Muscle spasms [Unknown]
  - Hypokalaemia [Recovering/Resolving]
  - Muscular weakness [Unknown]
  - Syncope [Unknown]
  - Rhabdomyolysis [Unknown]
  - Intentional product misuse [Unknown]
  - Palpitations [Unknown]
  - Malaise [Unknown]
  - Metabolic alkalosis [Recovering/Resolving]
